FAERS Safety Report 5282779-2 (Version None)
Quarter: 2007Q2

REPORT INFORMATION
  Report Type: 
  Country: None (occurrence: None)
  Receive Date: 20070402
  Receipt Date: 20070322
  Transmission Date: 20071010
  Serious: Yes (Life-Threatening)
  Sender: FDA-Public Use
  Company Number: JP-SANOFI-SYNTHELABO-A01200702728

PATIENT
  Sex: Male
  Weight: 53 kg

DRUGS (5)
  1. FLUOROURACIL [Concomitant]
     Dosage: UNK
     Route: 041
     Dates: start: 20070206, end: 20070206
  2. FLUOROURACIL [Concomitant]
     Dosage: UNK
     Route: 041
     Dates: start: 20070206, end: 20070207
  3. OXALIPLATIN [Suspect]
     Indication: RECTAL CANCER
     Route: 041
     Dates: start: 20070306, end: 20070306
  4. LEUCOVORIN CALCIUM [Suspect]
     Route: 041
     Dates: start: 20070306, end: 20070306
  5. DEXAMETHASONE SODIUM PHOSPHATE [Concomitant]
     Route: 041
     Dates: start: 20061019, end: 20070306

REACTIONS (1)
  - ANAPHYLACTIC SHOCK [None]
